FAERS Safety Report 9605731 (Version 1)
Quarter: 2013Q4

REPORT INFORMATION
  Report Type: Spontaneous
  Country: UG (occurrence: UG)
  Receive Date: 20131008
  Receipt Date: 20131008
  Transmission Date: 20140711
  Serious: Yes (Hospitalization)
  Sender: FDA-Public Use
  Company Number: UG-MYLANLABS-2013S1021720

PATIENT
  Age: 37 Year
  Sex: Female

DRUGS (3)
  1. ZIDOVUDINE [Suspect]
     Route: 065
     Dates: start: 201010
  2. LAMIVUDINE [Suspect]
     Route: 065
     Dates: start: 201010
  3. NEVIRAPINE [Suspect]
     Route: 065
     Dates: start: 201010

REACTIONS (3)
  - Immune reconstitution inflammatory syndrome associated tuberculosis [Unknown]
  - Thyroid tuberculosis [Unknown]
  - Paradoxical drug reaction [Unknown]
